FAERS Safety Report 6808767-X (Version None)
Quarter: 2010Q2

REPORT INFORMATION
  Report Type: 
  Country: None (occurrence: None)
  Receive Date: 20100630
  Receipt Date: 20090916
  Transmission Date: 20101027
  Serious: No
  Sender: FDA-Public Use
  Company Number: US-PFIZER INC-2009272460

PATIENT
  Sex: Male
  Weight: 120 kg

DRUGS (2)
  1. VIAGRA [Suspect]
     Indication: ERECTILE DYSFUNCTION
     Dosage: 33 MG, AS NEEDED
  2. AMBIEN [Concomitant]
     Dosage: AS NEEDED

REACTIONS (3)
  - FEELING COLD [None]
  - METABOLIC SYNDROME [None]
  - WEIGHT DECREASED [None]
